FAERS Safety Report 9052273 (Version 2)
Quarter: 2013Q1

REPORT INFORMATION
  Report Type: Spontaneous
  Country: JP (occurrence: JP)
  Receive Date: 20130206
  Receipt Date: 20130322
  Transmission Date: 20140127
  Serious: Yes (Life-Threatening, Hospitalization)
  Sender: FDA-Public Use
  Company Number: JP-PFIZER INC-2013045442

PATIENT
  Age: 6 Year
  Sex: Female

DRUGS (1)
  1. GENOTROPIN TC [Suspect]
     Indication: BODY HEIGHT BELOW NORMAL
     Dosage: 0.5 MG, 1X/DAY
     Route: 058
     Dates: start: 20111019, end: 20130121

REACTIONS (1)
  - Ovarian cancer [Unknown]
